FAERS Safety Report 22923765 (Version 2)
Quarter: 2024Q3

REPORT INFORMATION
  Report Type: Spontaneous
  Country: US (occurrence: None)
  Receive Date: 20230908
  Receipt Date: 20240906
  Transmission Date: 20241017
  Serious: No
  Sender: DOMPE FARMACEUTICI
  Company Number: US-FARMAPROD-202209-1866

PATIENT
  Age: 36 Year
  Sex: Female

DRUGS (6)
  1. OXERVATE [Suspect]
     Active Substance: CENEGERMIN-BKBJ
     Indication: Neurotrophic keratopathy
     Route: 047
     Dates: start: 20220921
  2. OXERVATE [Suspect]
     Active Substance: CENEGERMIN-BKBJ
     Route: 047
     Dates: start: 20230927
  3. ARTIFICIAL TEARS [Concomitant]
     Dosage: 0.1%-0.3%
  4. ATROPINE SULFATE [Concomitant]
     Active Substance: ATROPINE SULFATE
  5. RESTASIS [Concomitant]
     Active Substance: CYCLOSPORINE
  6. MOXIFLOXACIN [Concomitant]
     Active Substance: MOXIFLOXACIN

REACTIONS (5)
  - Eye pain [Unknown]
  - Ocular discomfort [Unknown]
  - Ocular hyperaemia [Unknown]
  - Device use issue [Unknown]
  - Periorbital pain [Unknown]

NARRATIVE: CASE EVENT DATE: 20220922
